FAERS Safety Report 20506495 (Version 1)
Quarter: 2022Q1

REPORT INFORMATION
  Report Type: Spontaneous
  Country: US (occurrence: None)
  Receive Date: 20220222
  Receipt Date: 20220222
  Transmission Date: 20220423
  Serious: Yes (Other)
  Sender: FDA-Public Use
  Company Number: None

PATIENT
  Age: 16 Year
  Sex: Female
  Weight: 67.5 kg

DRUGS (2)
  1. OLD SPICE PURE SPORT [Suspect]
     Active Substance: ALUMINUM ZIRCONIUM TRICHLOROHYDREX GLY
     Indication: Hyperhidrosis
     Dosage: FREQUENCY : TWICE A DAY  TOPICAL?
     Route: 061
  2. IRON [Concomitant]
     Active Substance: IRON

REACTIONS (5)
  - Application site pain [None]
  - Application site erythema [None]
  - Application site swelling [None]
  - Application site discolouration [None]
  - Application site discomfort [None]

NARRATIVE: CASE EVENT DATE: 20220218
